FAERS Safety Report 10456204 (Version 1)
Quarter: 2014Q3

REPORT INFORMATION
  Report Type: Spontaneous
  Country: US (occurrence: None)
  Receive Date: 20140912
  Receipt Date: 20140912
  Transmission Date: 20150326
  Serious: Yes (Hospitalization, Other)
  Sender: FDA-Public Use
  Company Number: 7318186

PATIENT
  Age: 62 Year
  Sex: Female

DRUGS (5)
  1. CANAGLIFLOZIN [Suspect]
     Active Substance: CANAGLIFLOZIN
     Indication: TYPE 2 DIABETES MELLITUS
     Dosage: 20 DAYS EARLIER - STOPPED
     Route: 048
  2. LEVOTHYROXINE (LEVOTHYROXINE) [Suspect]
     Active Substance: LEVOTHYROXINE
     Indication: PRODUCT USED FOR UNKNOWN INDICATION
     Route: 048
  3. ALBUTEROL /00139501/ (SALBUTAMOL) [Concomitant]
     Active Substance: ALBUTEROL
  4. INSULIN DETEMIR (INSULIN DETEMIR) [Suspect]
     Active Substance: INSULIN DETEMIR
     Indication: TYPE 2 DIABETES MELLITUS
  5. LISINOPRIL (LISINOPRIL) [Concomitant]
     Active Substance: LISINOPRIL

REACTIONS (4)
  - Cerebrovascular accident [None]
  - Diabetes mellitus inadequate control [None]
  - Glycosylated haemoglobin increased [None]
  - Blood pressure increased [None]
